FAERS Safety Report 15047893 (Version 2)
Quarter: 2018Q3

REPORT INFORMATION
  Report Type: Spontaneous
  Country: US (occurrence: US)
  Receive Date: 20180621
  Receipt Date: 20180716
  Transmission Date: 20181010
  Serious: No
  Sender: FDA-Public Use
  Company Number: US-B.I. PHARMACEUTICALS,INC./RIDGEFIELD-2018-BI-031514

PATIENT
  Age: 68 Year
  Sex: Female

DRUGS (1)
  1. SPIRIVA RESPIMAT [Suspect]
     Active Substance: TIOTROPIUM BROMIDE
     Indication: IMMUNODEFICIENCY COMMON VARIABLE
     Route: 055
     Dates: start: 2015

REACTIONS (5)
  - Cough [Not Recovered/Not Resolved]
  - Off label use [Unknown]
  - Device malfunction [Unknown]
  - Dose calculation error [Unknown]
  - Therapeutic response unexpected [Not Recovered/Not Resolved]

NARRATIVE: CASE EVENT DATE: 2015
